FAERS Safety Report 9322138 (Version 1)
Quarter: 2013Q2

REPORT INFORMATION
  Report Type: Spontaneous
  Country: US (occurrence: US)
  Receive Date: 20130531
  Receipt Date: 20130531
  Transmission Date: 20140414
  Serious: Yes (Other)
  Sender: FDA-Public Use
  Company Number: US-JNJFOC-20130518376

PATIENT
  Age: 68 Year
  Sex: Female

DRUGS (1)
  1. NICOTINE POLACRILEX GUM [Suspect]
     Indication: SMOKING CESSATION THERAPY
     Route: 002
     Dates: start: 2013, end: 201304

REACTIONS (3)
  - Oesophageal ulcer [Recovered/Resolved]
  - Ear pain [Recovered/Resolved]
  - Oropharyngeal pain [Recovered/Resolved]
